FAERS Safety Report 16641625 (Version 4)
Quarter: 2020Q3

REPORT INFORMATION
  Report Type: Spontaneous
  Country: JP (occurrence: JP)
  Receive Date: 20190729
  Receipt Date: 20200731
  Transmission Date: 20201102
  Serious: Yes (Death, Other)
  Sender: FDA-Public Use
  Company Number: JP-ACTELION-A-CH2019-193659

PATIENT
  Age: 76 Year
  Sex: Female
  Weight: 44.3 kg

DRUGS (10)
  1. MUCOSOLVAN [Concomitant]
     Active Substance: AMBROXOL HYDROCHLORIDE
     Indication: BRONCHITIS
     Dosage: 45 MG, QD
  2. AZULFIDINE EN?TABS [Concomitant]
     Active Substance: SULFASALAZINE
     Indication: RHEUMATOID ARTHRITIS
     Dosage: 500 MG, QD
  3. UPTRAVI [Suspect]
     Active Substance: SELEXIPAG
     Dosage: 0.2 MG, QOD
     Route: 048
     Dates: start: 20181121, end: 20181223
  4. ATORVASTATIN [Concomitant]
     Active Substance: ATORVASTATIN
     Indication: HYPERLIPIDAEMIA
     Dosage: 10 MG, QD
  5. EDIROL [Concomitant]
     Active Substance: ELDECALCITOL
     Indication: OSTEOPOROSIS
     Dosage: 0.75 MG, QD
  6. CELECOX [Concomitant]
     Active Substance: CELECOXIB
     Indication: ARTHRALGIA
     Dosage: 100 MG, QD
  7. TAKEPRON [Concomitant]
     Active Substance: LANSOPRAZOLE
     Indication: ABDOMINAL PAIN UPPER
     Dosage: 15 MG, QD
  8. PREDNISOLONE. [Concomitant]
     Active Substance: PREDNISOLONE
     Indication: RHEUMATOID ARTHRITIS
     Dosage: 7 MG, QD
  9. PROGRAF [Concomitant]
     Active Substance: TACROLIMUS
     Indication: RHEUMATOID ARTHRITIS
     Dosage: 0.5 MG, QD
  10. UPTRAVI [Suspect]
     Active Substance: SELEXIPAG
     Indication: PULMONARY ARTERIAL HYPERTENSION
     Dosage: 0.2 MG, BID
     Route: 048
     Dates: start: 20181107, end: 20181121

REACTIONS (6)
  - Pyrexia [Fatal]
  - Headache [Not Recovered/Not Resolved]
  - Lung infiltration [Fatal]
  - Condition aggravated [Fatal]
  - Pulmonary arterial hypertension [Fatal]
  - Dyspnoea [Fatal]

NARRATIVE: CASE EVENT DATE: 20181107
